FAERS Safety Report 6200257-0 (Version None)
Quarter: 2009Q2

REPORT INFORMATION
  Report Type: 
  Country: None (occurrence: None)
  Receive Date: 20090522
  Receipt Date: 20090518
  Transmission Date: 20091009
  Serious: Yes (Other)
  Sender: FDA-Public Use
  Company Number: US-ABBOTT-09P-163-0574600-00

PATIENT
  Sex: Female
  Weight: 55.388 kg

DRUGS (8)
  1. NIASPAN [Suspect]
     Indication: HIGH DENSITY LIPOPROTEIN DECREASED
     Dates: start: 20041201
  2. ASPIRIN [Concomitant]
     Indication: PROPHYLAXIS
     Dates: start: 20041201
  3. PRAVASTATIN [Concomitant]
     Indication: HIGH DENSITY LIPOPROTEIN DECREASED
  4. SYNTHROID [Concomitant]
     Indication: HYPOTHYROIDISM
     Dosage: UNKNOWN
  5. BENICAR [Concomitant]
     Indication: HYPERTENSION
     Dosage: UNKNOWN
  6. FOSAMAX [Concomitant]
     Indication: OSTEOPOROSIS PROPHYLAXIS
     Dosage: UNKNOWN
  7. RESTASIS [Concomitant]
     Indication: DRY EYE
     Dosage: UNKNOWN
  8. VAGIFEM [Concomitant]
     Indication: VULVOVAGINAL DRYNESS
     Dosage: UNKNOWN
     Route: 067

REACTIONS (3)
  - ATRIOVENTRICULAR BLOCK [None]
  - CATARACT [None]
  - GLUCOSE TOLERANCE IMPAIRED [None]
